FAERS Safety Report 4465118-6 (Version None)
Quarter: 2004Q3

REPORT INFORMATION
  Report Type: 
  Country: None (occurrence: None)
  Receive Date: 20040929
  Receipt Date: 20040913
  Transmission Date: 20050211
  Serious: Yes (Other)
  Sender: FDA-Public Use
  Company Number: USA040363020

PATIENT
  Age: 78 Year
  Sex: Female

DRUGS (5)
  1. EVISTA [Suspect]
     Indication: OSTEOPOROSIS
     Dates: start: 20010101, end: 20040101
  2. FORTEO [Suspect]
     Indication: OSTEOPOROSIS
     Dates: start: 20040201
  3. TERIPARATIDE [Concomitant]
  4. FOSAMAX [Concomitant]
  5. CALCIUM W/MAGNESIUM/VITAMIN D [Concomitant]

REACTIONS (9)
  - BONE DENSITY DECREASED [None]
  - CONDITION AGGRAVATED [None]
  - CONSTIPATION [None]
  - DIFFICULTY IN WALKING [None]
  - DRUG INEFFECTIVE [None]
  - MUSCLE CRAMP [None]
  - PAIN [None]
  - PHARMACEUTICAL PRODUCT COMPLAINT [None]
  - URINARY INCONTINENCE [None]
